FAERS Safety Report 5392577-7 (Version None)
Quarter: 2007Q3

REPORT INFORMATION
  Report Type: 
  Country: None (occurrence: None)
  Receive Date: 20070720
  Receipt Date: 20061009
  Transmission Date: 20080115
  Serious: Yes (Hospitalization)
  Sender: FDA-Public Use
  Company Number: GB-GILEAD-2006-0010433

PATIENT
  Age: 50 Year
  Sex: Male
  Weight: 65 kg

DRUGS (5)
  1. EMTRIVA [Suspect]
     Route: 048
     Dates: start: 20060604
  2. VIREAD [Suspect]
     Route: 048
     Dates: start: 20060604
  3. RITONAVIR [Suspect]
     Route: 048
     Dates: start: 20060604, end: 20060811
  4. FOSAMPRENAVIR [Suspect]
     Route: 048
     Dates: start: 20060604
  5. FLUCONAZOLE [Concomitant]
     Indication: CANDIDIASIS
     Route: 048

REACTIONS (5)
  - BLOOD CREATINE PHOSPHOKINASE INCREASED [None]
  - HYPERLACTACIDAEMIA [None]
  - MONOPARESIS [None]
  - MYOSITIS [None]
  - OEDEMA PERIPHERAL [None]
